FAERS Safety Report 6443694-1 (Version None)
Quarter: 2009Q4

REPORT INFORMATION
  Report Type: 
  Country: None (occurrence: None)
  Receive Date: 20091117
  Receipt Date: 20091106
  Transmission Date: 20100525
  Serious: Yes (Hospitalization)
  Sender: FDA-Public Use
  Company Number: US-MYLANLABS-2009S1019483

PATIENT
  Age: 43 Year
  Sex: Male
  Weight: 90.9 kg

DRUGS (7)
  1. INSULIN GLARGINE [Suspect]
     Indication: TYPE 2 DIABETES MELLITUS
     Route: 058
     Dates: start: 20080501, end: 20080501
  2. INSULIN GLARGINE [Suspect]
     Route: 058
     Dates: start: 20090803
  3. METFORMIN HCL [Suspect]
     Indication: TYPE 2 DIABETES MELLITUS
     Route: 048
     Dates: start: 20070901, end: 20090501
  4. VYTORIN [Concomitant]
     Dates: start: 20080501
  5. TRICOR [Concomitant]
     Dates: start: 20080501
  6. CLONAZEPAM [Concomitant]
     Dates: start: 20020101
  7. QUETIAPINE [Concomitant]
     Dates: start: 20020101

REACTIONS (4)
  - BLOOD GLUCOSE INCREASED [None]
  - DRUG INEFFECTIVE [None]
  - PANCREATITIS [None]
  - VISION BLURRED [None]
